FAERS Safety Report 9190017 (Version 1)
Quarter: 2013Q1

REPORT INFORMATION
  Report Type: Spontaneous
  Country: US (occurrence: None)
  Receive Date: 20130322
  Receipt Date: 20130322
  Transmission Date: 20140127
  Serious: Yes (Other)
  Sender: FDA-Public Use
  Company Number: None

PATIENT
  Age: 28 Year
  Sex: Female
  Weight: 54.43 kg

DRUGS (1)
  1. HUMIRA [Suspect]
     Indication: CROHN^S DISEASE
     Route: 030
     Dates: start: 20100720, end: 20111120

REACTIONS (16)
  - Alopecia [None]
  - Sinusitis [None]
  - Oropharyngeal pain [None]
  - Respiratory disorder [None]
  - Cough [None]
  - Ear infection [None]
  - Pain [None]
  - Headache [None]
  - Lymphadenopathy [None]
  - Renal pain [None]
  - Rash [None]
  - Rash [None]
  - Pyrexia [None]
  - Hyperhidrosis [None]
  - Chills [None]
  - No therapeutic response [None]
